FAERS Safety Report 23141202 (Version 2)
Quarter: 2023Q4

REPORT INFORMATION
  Report Type: Spontaneous
  Country: US (occurrence: US)
  Receive Date: 20231103
  Receipt Date: 20231107
  Transmission Date: 20240110
  Serious: No
  Sender: FDA-Public Use
  Company Number: US-OPELLA-2023OHG011131

PATIENT

DRUGS (1)
  1. ARTHRITIS HOT [Suspect]
     Active Substance: MENTHOL\METHYL SALICYLATE
     Indication: Pain
     Route: 065

REACTIONS (3)
  - Application site burn [Unknown]
  - Blister [Unknown]
  - Condition aggravated [Unknown]
